FAERS Safety Report 5863744-0 (Version None)
Quarter: 2008Q3

REPORT INFORMATION
  Report Type: 
  Country: None (occurrence: None)
  Receive Date: 20080828
  Receipt Date: 20080825
  Transmission Date: 20090109
  Serious: Yes (Hospitalization)
  Sender: FDA-Public Use
  Company Number: MX-ABBOTT-08P-107-0472076-00

PATIENT
  Sex: Female
  Weight: 69 kg

DRUGS (4)
  1. TARKA [Suspect]
     Indication: HYPERTENSION
     Dosage: 180MG/2MG
     Route: 048
     Dates: start: 20080604
  2. METFORMIN HYDROCHLORIDE [Concomitant]
     Indication: TYPE 2 DIABETES MELLITUS
     Dates: start: 20060701
  3. PRAVASTATIN [Concomitant]
     Indication: DYSLIPIDAEMIA
     Dates: start: 20080325
  4. BEZAFIBRATE [Concomitant]
     Indication: DYSLIPIDAEMIA
     Dates: start: 20080325

REACTIONS (3)
  - CHOLELITHIASIS [None]
  - GALLBLADDER PAIN [None]
  - PROCEDURAL PAIN [None]
